FAERS Safety Report 4378267-8 (Version None)
Quarter: 2004Q2

REPORT INFORMATION
  Report Type: 
  Country: None (occurrence: None)
  Receive Date: 20040616
  Receipt Date: 20040601
  Transmission Date: 20050107
  Serious: Yes (Life-Threatening, Hospitalization, Other)
  Sender: FDA-Public Use
  Company Number: FR-BRISTOL-MYERS SQUIBB COMPANY-12601514

PATIENT
  Age: 53 Year
  Sex: Female
  Weight: 61 kg

DRUGS (13)
  1. REYATAZ [Suspect]
     Indication: HIV INFECTION
     Route: 048
     Dates: start: 20040507, end: 20040514
  2. NORVIR [Concomitant]
     Indication: HIV INFECTION
     Route: 048
     Dates: start: 20040507, end: 20040514
  3. EPIVIR [Concomitant]
     Indication: HIV INFECTION
     Route: 048
     Dates: start: 20040507, end: 20040514
  4. ZIAGEN [Concomitant]
     Indication: HIV INFECTION
     Route: 048
     Dates: start: 20040507, end: 20040514
  5. ALDACTONE [Concomitant]
  6. AKINETON [Concomitant]
     Dosage: DOSAGE FORM = TABLET
  7. AVLOCARDYL [Concomitant]
  8. PROZAC [Concomitant]
  9. IMOVANE [Concomitant]
     Dosage: DOSAGE FORM = TABLET
  10. TERCIAN [Concomitant]
     Dosage: DOSAGE FORM = TABLET
  11. TERALITHE [Concomitant]
  12. MIXTARD HUMAN 70/30 [Concomitant]
  13. INSULATARD NPH HUMAN [Concomitant]

REACTIONS (3)
  - AMNESIA [None]
  - COMA [None]
  - FALL [None]
